FAERS Safety Report 20192183 (Version 1)
Quarter: 2021Q4

REPORT INFORMATION
  Report Type: Spontaneous
  Country: US (occurrence: US)
  Receive Date: 20211216
  Receipt Date: 20211216
  Transmission Date: 20220303
  Serious: No
  Sender: FDA-Public Use
  Company Number: US-ENDO PHARMACEUTICALS INC-2020-007967

PATIENT
  Sex: Male
  Weight: 102.4 kg

DRUGS (6)
  1. XIAFLEX [Suspect]
     Active Substance: COLLAGENASE CLOSTRIDIUM HISTOLYTICUM
     Indication: Peyronie^s disease
     Dosage: UNK UNKNOWN, UNKNOWN (CYCLE 4, INJECTION 1 + 2)
     Route: 065
     Dates: start: 202001
  2. XIAFLEX [Suspect]
     Active Substance: COLLAGENASE CLOSTRIDIUM HISTOLYTICUM
     Dosage: UNK UNKNOWN, UNKNOWN (CYCLE 3, INJECTION 1 + 2)
     Route: 065
  3. XIAFLEX [Suspect]
     Active Substance: COLLAGENASE CLOSTRIDIUM HISTOLYTICUM
     Dosage: UNK UNKNOWN, UNKNOWN (CYCLE 2, INJECTION 1 + 2)
     Route: 065
  4. XIAFLEX [Suspect]
     Active Substance: COLLAGENASE CLOSTRIDIUM HISTOLYTICUM
     Dosage: UNK UNKNOWN, UNKNOWN (CYCLE 1, INJECTION 1)
     Route: 065
     Dates: start: 201909
  5. ADVIL                              /00044201/ [Concomitant]
     Indication: Product used for unknown indication
     Dosage: 2 DF, DAILY
     Route: 065
  6. SIMVASTATIN [Concomitant]
     Active Substance: SIMVASTATIN
     Indication: Product used for unknown indication
     Dosage: 40 MG, DAILY
     Route: 065

REACTIONS (3)
  - Peyronie^s disease [Unknown]
  - Wrong technique in product usage process [Unknown]
  - Drug ineffective [Unknown]
